FAERS Safety Report 10158043 (Version 2)
Quarter: 2014Q2

REPORT INFORMATION
  Report Type: Spontaneous
  Country: US (occurrence: US)
  Receive Date: 20140507
  Receipt Date: 20140507
  Transmission Date: 20141212
  Serious: Yes (Death, Hospitalization)
  Sender: FDA-Public Use
  Company Number: US-CUBIST PHARMACEUTICAL, INC.-2010S1000384

PATIENT
  Age: 43 Year
  Sex: Male

DRUGS (1)
  1. CUBICIN [Suspect]
     Indication: MULTIPLE SCLEROSIS
     Dosage: 4 MG/KG, QD
     Route: 042

REACTIONS (2)
  - Loss of consciousness [None]
  - Rash [Unknown]
